FAERS Safety Report 9426508 (Version 1)
Quarter: 2013Q3

REPORT INFORMATION
  Report Type: Spontaneous
  Country: US (occurrence: None)
  Receive Date: 20130729
  Receipt Date: 20130729
  Transmission Date: 20140515
  Serious: Yes (Other)
  Sender: FDA-Public Use
  Company Number: None

PATIENT
  Age: 57 Year
  Sex: Female
  Weight: 92.08 kg

DRUGS (1)
  1. EPLERENONE [Suspect]
     Indication: HYPERTENSION
     Dosage: 50MG TID PO
     Route: 048
     Dates: start: 20121001, end: 20130501

REACTIONS (10)
  - Peripheral coldness [None]
  - Swelling face [None]
  - Breast pain [None]
  - Breast enlargement [None]
  - Galactorrhoea [None]
  - Lymphoedema [None]
  - Pulmonary oedema [None]
  - Pain [None]
  - Muscular weakness [None]
  - Lymphadenopathy [None]
